FAERS Safety Report 8610549-3 (Version None)
Quarter: 2012Q3

REPORT INFORMATION
  Report Type: 
  Country: None (occurrence: None)
  Receive Date: 20120808
  Receipt Date: 20120727
  Transmission Date: 20120928
  Serious: Yes (Hospitalization)
  Sender: FDA-Public Use
  Company Number: JPI-P-022944

PATIENT
  Age: 47 Year
  Sex: Female
  Weight: 72.5755 kg

DRUGS (7)
  1. METHYLPHENIDATE [Concomitant]
  2. XYREM [Suspect]
     Indication: NARCOLEPSY
     Dosage: ORAL
     Route: 048
     Dates: start: 20101101
  3. XYREM [Suspect]
     Indication: NARCOLEPSY
     Dosage: ORAL
     Route: 048
     Dates: end: 20120703
  4. XYREM [Suspect]
     Indication: NARCOLEPSY
     Dosage: ORAL
     Route: 048
     Dates: start: 20120707
  5. LEVETIRACETAM [Concomitant]
  6. DULOXETINE HYDROCHLORIDE [Concomitant]
  7. CYCLOSPORINE [Concomitant]

REACTIONS (1)
  - BENIGN OVARIAN TUMOUR [None]
